FAERS Safety Report 21762650 (Version 1)
Quarter: 2022Q4

REPORT INFORMATION
  Report Type: Spontaneous
  Country: US (occurrence: US)
  Receive Date: 20221221
  Receipt Date: 20221221
  Transmission Date: 20230113
  Serious: No
  Sender: FDA-Public Use
  Company Number: US-ABBVIE-4222158

PATIENT

DRUGS (3)
  1. HUMIRA [Suspect]
     Active Substance: ADALIMUMAB
     Indication: Product used for unknown indication
     Route: 058
  2. PREDNISONE [Concomitant]
     Active Substance: PREDNISONE
     Indication: Product used for unknown indication
  3. MERCAPTOPURINE [Concomitant]
     Active Substance: MERCAPTOPURINE
     Indication: Product used for unknown indication

REACTIONS (7)
  - Condition aggravated [Recovered/Resolved]
  - Fatigue [Unknown]
  - General symptom [Unknown]
  - Drug ineffective [Unknown]
  - Condition aggravated [Unknown]
  - Mental disorder [Unknown]
  - Acne [Unknown]

NARRATIVE: CASE EVENT DATE: 20221101
